FAERS Safety Report 10040891 (Version 1)
Quarter: 2014Q1

REPORT INFORMATION
  Report Type: Spontaneous
  Country: US (occurrence: US)
  Receive Date: 20140327
  Receipt Date: 20140327
  Transmission Date: 20141002
  Serious: No
  Sender: FDA-Public Use
  Company Number: US-PFIZER INC-2014083617

PATIENT
  Age: 71 Year
  Sex: Female
  Weight: 82.09 kg

DRUGS (2)
  1. LYRICA [Suspect]
     Indication: FIBROMYALGIA
     Dosage: 200 MG, DAILY
     Dates: start: 2006, end: 2013
  2. IBUPROFEN [Concomitant]
     Indication: FIBROMYALGIA
     Dosage: UNK

REACTIONS (1)
  - Therapeutic response unexpected [Unknown]
